FAERS Safety Report 9402267 (Version 2)
Quarter: 2015Q1

REPORT INFORMATION
  Report Type: Spontaneous
  Country: US (occurrence: US)
  Receive Date: 20130716
  Receipt Date: 20150210
  Transmission Date: 20150721
  Serious: No
  Sender: FDA-Public Use
  Company Number: US-GLAXOSMITHKLINE-A1015953A

PATIENT

DRUGS (7)
  1. NICORETTE [Suspect]
     Active Substance: NICOTINE
     Route: 002
  2. NICOTINE GUM 2MG UNKNOWN BRAND MEDICATED CHEWING-GUM [Concomitant]
     Active Substance: NICOTINE
     Route: 002
  3. NICOTINE LOZENGE LOZENGE [Suspect]
     Active Substance: NICOTINE
     Route: 002
  4. NICORETTE [Suspect]
     Active Substance: NICOTINE
     Indication: SMOKING CESSATION THERAPY
     Route: 002
  5. NICORETTE [Suspect]
     Active Substance: NICOTINE
     Indication: SMOKING CESSATION THERAPY
     Route: 002
  6. UNKNOWN [Suspect]
     Active Substance: UNSPECIFIED INGREDIENT
  7. NICORETTE [Suspect]
     Active Substance: NICOTINE
     Indication: SMOKING CESSATION THERAPY
     Route: 002

REACTIONS (16)
  - Gingival pain [Unknown]
  - Drug administration error [Not Recovered/Not Resolved]
  - Skin disorder [Unknown]
  - Application site exfoliation [Unknown]
  - Application site dryness [Unknown]
  - Wrong technique in drug usage process [None]
  - Gingival erythema [Unknown]
  - Noninfective gingivitis [Not Recovered/Not Resolved]
  - Nicotine dependence [Not Recovered/Not Resolved]
  - Intentional product use issue [Not Recovered/Not Resolved]
  - Product quality issue [Unknown]
  - Leukoplakia [Recovered/Resolved]
  - Oral mucosal discolouration [Unknown]
  - Drug ineffective [Unknown]
  - Oral herpes [Unknown]
  - Cheilitis [Not Recovered/Not Resolved]
